FAERS Safety Report 13980824 (Version 6)
Quarter: 2018Q3

REPORT INFORMATION
  Report Type: Report from Study
  Country: None (occurrence: US)
  Receive Date: 20170918
  Receipt Date: 20180910
  Transmission Date: 20181010
  Serious: Yes (Other)
  Sender: FDA-Public Use
  Company Number: US-ABBVIE-17K-163-2091334-00

PATIENT
  Age: 47 Year
  Sex: Female

DRUGS (2)
  1. HUMIRA [Suspect]
     Active Substance: ADALIMUMAB
     Route: 058
     Dates: start: 201802
  2. HUMIRA [Suspect]
     Active Substance: ADALIMUMAB
     Indication: RHEUMATOID ARTHRITIS
     Route: 058
     Dates: start: 20170816, end: 201802

REACTIONS (22)
  - Discomfort [Unknown]
  - Loss of personal independence in daily activities [Recovered/Resolved]
  - Animal bite [Unknown]
  - Injection site papule [Not Recovered/Not Resolved]
  - Loss of consciousness [Recovered/Resolved]
  - Joint swelling [Not Recovered/Not Resolved]
  - Purpura [Unknown]
  - Injection site erythema [Recovered/Resolved]
  - Injection site pruritus [Not Recovered/Not Resolved]
  - Animal scratch [Unknown]
  - Loss of personal independence in daily activities [Unknown]
  - Joint stiffness [Not Recovered/Not Resolved]
  - Depression [Unknown]
  - Injection site pain [Not Recovered/Not Resolved]
  - Fatigue [Recovered/Resolved]
  - Musculoskeletal stiffness [Not Recovered/Not Resolved]
  - Inappropriate schedule of drug administration [Recovered/Resolved]
  - Dizziness [Unknown]
  - Arthralgia [Recovering/Resolving]
  - Injection site swelling [Recovered/Resolved]
  - Nail operation [Unknown]
  - Arthritis [Unknown]

NARRATIVE: CASE EVENT DATE: 2017
